FAERS Safety Report 18577530 (Version 2)
Quarter: 2020Q4

REPORT INFORMATION
  Report Type: Spontaneous
  Country: JP (occurrence: JP)
  Receive Date: 20201204
  Receipt Date: 20201228
  Transmission Date: 20210114
  Serious: No
  Sender: FDA-Public Use
  Company Number: JP-TAKEDA-2020TJP025954

PATIENT
  Age: 73 Year
  Sex: Male

DRUGS (2)
  1. FLUMETHOLON [Concomitant]
     Active Substance: FLUOROMETHOLONE
     Dosage: UNK
     Route: 065
  2. ROZEREM [Suspect]
     Active Substance: RAMELTEON
     Indication: INITIAL INSOMNIA
     Dosage: 8 MILLIGRAM
     Route: 048
     Dates: start: 20201125, end: 20201126

REACTIONS (2)
  - Muscle spasms [Recovered/Resolved]
  - Hypoglycaemia [Unknown]

NARRATIVE: CASE EVENT DATE: 20201125
